FAERS Safety Report 19594693 (Version 1)
Quarter: 2021Q3

REPORT INFORMATION
  Report Type: Report from Study
  Country: None (occurrence: CA)
  Receive Date: 20210722
  Receipt Date: 20210722
  Transmission Date: 20211014
  Serious: Yes (Hospitalization)
  Sender: FDA-Public Use
  Company Number: CA-ABBVIE-21K-028-3999687-00

PATIENT
  Age: 51 Year
  Sex: Female

DRUGS (1)
  1. SKYRIZI [Suspect]
     Active Substance: RISANKIZUMAB-RZAA
     Indication: PSORIASIS
     Route: 058
     Dates: start: 20200603

REACTIONS (5)
  - Pain [Not Recovered/Not Resolved]
  - Hepatic failure [Unknown]
  - Psoriasis [Not Recovered/Not Resolved]
  - Renal failure [Unknown]
  - Fibromyalgia [Unknown]

NARRATIVE: CASE EVENT DATE: 202008
